FAERS Safety Report 10214985 (Version 2)
Quarter: 2014Q2

REPORT INFORMATION
  Report Type: Report from Study
  Country: DK (occurrence: DE)
  Receive Date: 20140603
  Receipt Date: 20140618
  Transmission Date: 20141212
  Serious: Yes (Hospitalization)
  Sender: FDA-Public Use
  Company Number: DE-FRI-1000067783

PATIENT
  Sex: Female

DRUGS (15)
  1. ESCITALOPRAM [Suspect]
     Dosage: 5 MG
     Route: 048
     Dates: start: 20140114, end: 20140116
  2. ESCITALOPRAM [Suspect]
     Dosage: 10 MG
     Route: 048
     Dates: start: 20140117, end: 20140122
  3. ESCITALOPRAM [Suspect]
     Dosage: 15 MG
     Route: 048
     Dates: start: 20140123, end: 20140203
  4. ESCITALOPRAM [Suspect]
     Dosage: 20 MG
     Route: 048
     Dates: start: 20140204
  5. ZYPREXA [Suspect]
     Dosage: 5 MG
     Route: 048
     Dates: start: 20140109, end: 20140109
  6. ZYPREXA [Suspect]
     Dosage: 7.5 MG
     Route: 048
     Dates: start: 20140110, end: 20140110
  7. ZYPREXA [Suspect]
     Dosage: 10 MG
     Route: 048
     Dates: start: 20140111, end: 20140119
  8. ZYPREXA [Suspect]
     Dosage: 12.5 MG
     Route: 048
     Dates: start: 20140120, end: 20140122
  9. ZYPREXA [Suspect]
     Dosage: 7.5 MG
     Route: 048
     Dates: start: 20140123, end: 20140125
  10. ZYPREXA [Suspect]
     Dosage: 5 MG
     Route: 048
     Dates: start: 20140126, end: 20140127
  11. ZYPREXA [Suspect]
     Dosage: 2.5 MG
     Route: 048
     Dates: start: 20140128, end: 20140128
  12. TAVOR [Suspect]
     Dosage: 1.5 MG
     Route: 048
     Dates: start: 20140111, end: 20140125
  13. TAVOR [Suspect]
     Dosage: 1 MG
     Route: 048
     Dates: start: 20140126, end: 20140129
  14. TAVOR [Suspect]
     Dosage: 0.5 MG
     Route: 048
     Dates: start: 20140130, end: 20140204
  15. TAVOR [Suspect]
     Dosage: 0.25 MG
     Route: 048
     Dates: start: 20140205, end: 20140206

REACTIONS (4)
  - Urinary retention [Recovered/Resolved]
  - Urinary incontinence [Recovered/Resolved]
  - Leukocytosis [Unknown]
  - C-reactive protein increased [Unknown]
